FAERS Safety Report 20716812 (Version 1)
Quarter: 2022Q2

REPORT INFORMATION
  Report Type: Spontaneous
  Country: US (occurrence: US)
  Receive Date: 20220416
  Receipt Date: 20220416
  Transmission Date: 20220721
  Serious: Yes (Other)
  Sender: FDA-Public Use
  Company Number: US-Accord-260527

PATIENT
  Sex: Female
  Weight: 63.96 kg

DRUGS (8)
  1. LETROZOLE [Suspect]
     Active Substance: LETROZOLE
     Indication: Breast cancer
  2. PREVACID [Concomitant]
     Active Substance: LANSOPRAZOLE
     Dosage: DAILY
  3. LIPITOR [Concomitant]
     Active Substance: ATORVASTATIN CALCIUM
     Dosage: DAILY
  4. METOPROLOL [Concomitant]
     Active Substance: METOPROLOL
     Dosage: DAILY
  5. LOSARTAN [Concomitant]
     Active Substance: LOSARTAN
     Dosage: DAILY
  6. PAXIL [Concomitant]
     Active Substance: PAROXETINE HYDROCHLORIDE
     Indication: Hot flush
     Dosage: 25MG ONCE A DAY
  7. BUTALBITAL AND ACETAMINOPHEN [Concomitant]
     Active Substance: ACETAMINOPHEN\BUTALBITAL
     Indication: Migraine
     Dosage: 50/300 PRN
  8. RELPAX [Concomitant]
     Active Substance: ELETRIPTAN HYDROBROMIDE
     Indication: Migraine
     Dosage: 40MG PRN

REACTIONS (3)
  - Glaucoma [Not Recovered/Not Resolved]
  - Myalgia [Not Recovered/Not Resolved]
  - Alopecia [Not Recovered/Not Resolved]
